FAERS Safety Report 6501722-9 (Version None)
Quarter: 2009Q4

REPORT INFORMATION
  Report Type: 
  Country: None (occurrence: None)
  Receive Date: 20091127
  Receipt Date: 20081230
  Transmission Date: 20100525
  Serious: Yes (Disabling)
  Sender: FDA-Public Use
  Company Number: WAES 0812USA05213

PATIENT
  Age: 57 Year
  Sex: Female

DRUGS (18)
  1. FOSAMAX [Suspect]
     Indication: OSTEOPOROSIS
     Dosage: 70MG/PO
     Route: 048
     Dates: start: 20050301, end: 20080201
  2. CYMBALTA [Concomitant]
  3. KLOR-CON [Concomitant]
  4. LEVOTHROID [Concomitant]
  5. NITROGLYCERIN [Concomitant]
  6. ZOLOFT [Concomitant]
  7. ALBUTEROL [Concomitant]
  8. AMITRIPTYLINE HYDROCHLORIDE [Concomitant]
  9. BACLOFEN [Concomitant]
  10. CEPHALEXIN [Concomitant]
  11. CLONAZEPAM [Concomitant]
  12. FUROSEMIDE [Concomitant]
  13. HYDROCODONE [Concomitant]
  14. ISOSORBIDE DINITRATE [Concomitant]
  15. LEVOTHYROXINE SODIUM [Concomitant]
  16. METHOTREXATE [Concomitant]
  17. POTASSIUM CHLORIDE [Concomitant]
  18. VERAPMIL [Concomitant]

REACTIONS (1)
  - OSTEONECROSIS [None]
